FAERS Safety Report 13236791 (Version 1)
Quarter: 2017Q1

REPORT INFORMATION
  Report Type: Spontaneous
  Country: US (occurrence: US)
  Receive Date: 20170215
  Receipt Date: 20170215
  Transmission Date: 20170428
  Serious: No
  Sender: FDA-Public Use
  Company Number: US-LANTHEUS-LMI-2016-00017

PATIENT
  Age: 32 Year
  Sex: Female
  Weight: 190 kg

DRUGS (1)
  1. DEFINITY [Suspect]
     Active Substance: PERFLUTREN
     Indication: ECHOCARDIOGRAM
     Dosage: A TOTAL OF ABOUT 6.0 TO 6.5 ML OF DILUTED DEFINITY (DILUTION DETAILS NOT PROVIDED) IN DOSES OF 1 ML.
     Route: 040
     Dates: start: 20160114, end: 20160114

REACTIONS (2)
  - Pain in extremity [Recovered/Resolved]
  - Back pain [Recovered/Resolved]

NARRATIVE: CASE EVENT DATE: 20160114
